FAERS Safety Report 4877719-1 (Version None)
Quarter: 2006Q1

REPORT INFORMATION
  Report Type: 
  Country: None (occurrence: None)
  Receive Date: 20060109
  Receipt Date: 20051230
  Transmission Date: 20060701
  Serious: Yes (Other)
  Sender: FDA-Public Use
  Company Number: 2006000800

PATIENT
  Age: 42 Year
  Sex: Male
  Weight: 90.7194 kg

DRUGS (1)
  1. NEOSPORIN LIP THERAPY (ALLANTOIN, PRAMOXINE HYDROCHLORIDE) [Suspect]
     Indication: CHAPPED LIPS
     Dosage: UNSPECIFIED 6 TIMES DAILY, TOPICAL
     Route: 061
     Dates: start: 20051201, end: 20051229

REACTIONS (3)
  - DRUG HYPERSENSITIVITY [None]
  - LOCALISED INFECTION [None]
  - SWELLING FACE [None]
